FAERS Safety Report 14630130 (Version 6)
Quarter: 2021Q1

REPORT INFORMATION
  Report Type: Spontaneous
  Country: US (occurrence: US)
  Receive Date: 20180313
  Receipt Date: 20210310
  Transmission Date: 20210419
  Serious: Yes (Other)
  Sender: FDA-Public Use
  Company Number: US-PFIZER INC-2018102847

PATIENT
  Age: 52 Year
  Sex: Male
  Weight: 90.72 kg

DRUGS (4)
  1. ATORVASTATIN CALCIUM. [Suspect]
     Active Substance: ATORVASTATIN CALCIUM
     Indication: CARDIAC DISORDER
     Dosage: 20 MG, 1X/DAY
     Route: 048
     Dates: start: 2008
  2. ATORVASTATIN CALCIUM. [Suspect]
     Active Substance: ATORVASTATIN CALCIUM
     Dosage: UNK
     Dates: start: 2009, end: 2012
  3. LIPITOR [Concomitant]
     Active Substance: ATORVASTATIN CALCIUM
     Indication: CARDIAC DISORDER
     Dosage: 20 MG
     Dates: start: 1996
  4. LIPITOR [Concomitant]
     Active Substance: ATORVASTATIN CALCIUM
     Dosage: 40 MG, 1X/DAY
     Route: 048
     Dates: start: 201703

REACTIONS (6)
  - Drug ineffective [Recovered/Resolved]
  - Pain [Unknown]
  - Influenza like illness [Unknown]
  - Rotator cuff syndrome [Unknown]
  - Atrial flutter [Unknown]
  - Impaired healing [Unknown]

NARRATIVE: CASE EVENT DATE: 2009
